FAERS Safety Report 25238801 (Version 1)
Quarter: 2025Q2

REPORT INFORMATION
  Report Type: Spontaneous
  Country: US (occurrence: US)
  Receive Date: 20250425
  Receipt Date: 20250425
  Transmission Date: 20250717
  Serious: No
  Sender: TAKEDA
  Company Number: US-TAKEDA-2025TUS038478

PATIENT
  Sex: Male

DRUGS (4)
  1. ADDERALL XR [Suspect]
     Active Substance: AMPHETAMINE ASPARTATE\AMPHETAMINE SULFATE\DEXTROAMPHETAMINE SACCHARATE\DEXTROAMPHETAMINE SULFATE
     Indication: Attention deficit hyperactivity disorder
  2. DAYTRANA [Suspect]
     Active Substance: METHYLPHENIDATE
     Indication: Attention deficit hyperactivity disorder
  3. DAYTRANA [Suspect]
     Active Substance: METHYLPHENIDATE
  4. DAYTRANA [Suspect]
     Active Substance: METHYLPHENIDATE

REACTIONS (4)
  - Wrong technique in product usage process [Unknown]
  - Migraine [Recovered/Resolved with Sequelae]
  - Incorrect dose administered [Unknown]
  - Drug ineffective [Unknown]
